FAERS Safety Report 7997249-8 (Version None)
Quarter: 2011Q4

REPORT INFORMATION
  Report Type: 
  Country: None (occurrence: None)
  Receive Date: 20111208
  Receipt Date: 20111122
  Transmission Date: 20120403
  Serious: Yes (Other)
  Sender: FDA-Public Use
  Company Number: 2011030381

PATIENT
  Age: 66 Year
  Sex: Female

DRUGS (5)
  1. PRIVIGEN [Suspect]
     Dosage: INTRAVENOUS (NOT OTHERWISE SPECIFIED)
     Route: 042
     Dates: start: 20111024, end: 20111024
  2. PRIVIGEN [Suspect]
     Dosage: INTRAVENOUS (NOT OTHERWISE SPECIFIED)
     Route: 042
  3. PRIVIGEN [Suspect]
     Dates: start: 20111026, end: 20111026
  4. PRIVIGEN [Suspect]
     Indication: OFF LABEL USE
     Dosage: INTRAVENOUS (NOT OTHERWISE SPECIFIED)
     Route: 042
     Dates: start: 20111024, end: 20111024
  5. PRIVIGEN [Suspect]
     Indication: DEMYELINATING POLYNEUROPATHY
     Dosage: INTRAVENOUS (NOT OTHERWISE SPECIFIED)
     Route: 042
     Dates: start: 20111024, end: 20111024

REACTIONS (3)
  - HAEMOGLOBIN DECREASED [None]
  - HAEMOLYTIC TRANSFUSION REACTION [None]
  - ANAEMIA [None]
